FAERS Safety Report 16432482 (Version 2)
Quarter: 2019Q2

REPORT INFORMATION
  Report Type: Spontaneous
  Country: US (occurrence: US)
  Receive Date: 20190614
  Receipt Date: 20190623
  Transmission Date: 20190711
  Serious: No
  Sender: FDA-Public Use
  Company Number: US-009507513-1906USA005426

PATIENT
  Age: 10 Year
  Sex: Male

DRUGS (5)
  1. DULERA [Suspect]
     Active Substance: FORMOTEROL FUMARATE DIHYDRATE\MOMETASONE FUROATE
     Indication: ASTHMA
     Dosage: TWO 200/5MICROGRAM PUFFS TWICE/DAILY IN TEH MRNING AND EVENING
     Route: 048
     Dates: start: 201811
  2. ZYRTEC [Concomitant]
     Active Substance: CETIRIZINE HYDROCHLORIDE
  3. SINGULAIR [Concomitant]
     Active Substance: MONTELUKAST SODIUM
     Dosage: UNK
  4. ALBUTEROL. [Concomitant]
     Active Substance: ALBUTEROL
     Dosage: UNK
  5. IPRATROPIUM BROMIDE. [Concomitant]
     Active Substance: IPRATROPIUM BROMIDE
     Dosage: UNK

REACTIONS (3)
  - Dyspnoea [Not Recovered/Not Resolved]
  - Product dose omission [Unknown]
  - Cough [Not Recovered/Not Resolved]

NARRATIVE: CASE EVENT DATE: 201906
